FAERS Safety Report 19352493 (Version 1)
Quarter: 2021Q2

REPORT INFORMATION
  Report Type: Spontaneous
  Country: US (occurrence: US)
  Receive Date: 20210601
  Receipt Date: 20210601
  Transmission Date: 20210717
  Serious: No
  Sender: FDA-Public Use
  Company Number: US-SA-2021SA178949

PATIENT
  Age: 63 Year
  Sex: Female

DRUGS (2)
  1. DUPIXENT [Suspect]
     Active Substance: DUPILUMAB
     Dosage: 300 MG, QOW
     Route: 058
     Dates: start: 2021
  2. DUPIXENT [Suspect]
     Active Substance: DUPILUMAB
     Indication: ASTHMA
     Dosage: 600 MG, TOTAL UNDER THE SKIN ON DAY 1
     Route: 058
     Dates: start: 202105, end: 202105

REACTIONS (4)
  - Cough [Unknown]
  - Injection site pain [Unknown]
  - Injection site swelling [Unknown]
  - Pruritus [Unknown]

NARRATIVE: CASE EVENT DATE: 202105
